FAERS Safety Report 21572926 (Version 1)
Quarter: 2022Q4

REPORT INFORMATION
  Report Type: Spontaneous
  Country: DE (occurrence: DE)
  Receive Date: 20221109
  Receipt Date: 20221109
  Transmission Date: 20230113
  Serious: Yes (Hospitalization)
  Sender: FDA-Public Use
  Company Number: DE-ADRED-07740-01

PATIENT
  Age: 78 Year
  Sex: Male

DRUGS (5)
  1. CLINDAMYCIN [Suspect]
     Active Substance: CLINDAMYCIN
     Indication: Product used for unknown indication
     Dosage: 300 MILLIGRAM, QID, 1-1-1-1
     Route: 048
  2. AMLODIPINE\RAMIPRIL [Suspect]
     Active Substance: AMLODIPINE\RAMIPRIL
     Indication: Product used for unknown indication
     Dosage: UNK, BID, 5|5 MG, 1-0-1-0
     Route: 048
  3. METAMIZOL [Concomitant]
     Active Substance: METAMIZOLE SODIUM
     Dosage: 500 MILLIGRAM, QID,  1-1-1-1
     Route: 048
  4. NALOXONE HYDROCHLORIDE\TILIDINE HYDROCHLORIDE [Concomitant]
     Active Substance: NALOXONE HYDROCHLORIDE\TILIDINE HYDROCHLORIDE
     Dosage: UNK, QD, 3.6|44.1 MG, 0-0-0-1
     Route: 048
  5. FUROSEMIDE [Concomitant]
     Active Substance: FUROSEMIDE
     Dosage: 40 MILLIGRAM, QD, 1-0-0-0
     Route: 048

REACTIONS (5)
  - Speech disorder [Recovered/Resolved]
  - Erysipelas [Recovered/Resolved]
  - Hypersensitivity [Recovered/Resolved]
  - Angioedema [Recovered/Resolved]
  - Swollen tongue [Recovered/Resolved]

NARRATIVE: CASE EVENT DATE: 20210917
